FAERS Safety Report 8438911-2 (Version None)
Quarter: 2012Q2

REPORT INFORMATION
  Report Type: 
  Country: None (occurrence: None)
  Receive Date: 20120608
  Receipt Date: 20120522
  Transmission Date: 20120825
  Serious: Yes (Other)
  Sender: FDA-Public Use
  Company Number: JPI-P-021649

PATIENT
  Age: 36 Year
  Sex: Female

DRUGS (3)
  1. XYREM [Suspect]
     Indication: NARCOLEPSY
     Dosage: 4.5;6 GM (2.25; 3 GM, 2 IN 1 D), ORAL
     Route: 048
     Dates: start: 20120101, end: 20120101
  2. XYREM [Suspect]
     Indication: NARCOLEPSY
     Dosage: 4.5;6 GM (2.25; 3 GM, 2 IN 1 D), ORAL
     Route: 048
     Dates: start: 20120405
  3. XYREM [Suspect]
     Indication: NARCOLEPSY
     Dosage: 4.5;6 GM (2.25; 3 GM, 2 IN 1 D), ORAL
     Route: 048
     Dates: start: 20120229

REACTIONS (3)
  - HERNIA REPAIR [None]
  - HEADACHE [None]
  - DEHYDRATION [None]
